FAERS Safety Report 10425225 (Version 1)
Quarter: 2014Q3

REPORT INFORMATION
  Report Type: Spontaneous
  Country: US (occurrence: US)
  Receive Date: 20140902
  Receipt Date: 20140902
  Transmission Date: 20150326
  Serious: Yes (Other)
  Sender: FDA-Public Use
  Company Number: US-PFIZER INC-2014238897

PATIENT
  Age: 19 Year
  Sex: Male
  Weight: 97.05 kg

DRUGS (7)
  1. PREGABALIN. [Suspect]
     Active Substance: PREGABALIN
     Dosage: 800 MG, DAILY
  2. PREGABALIN. [Suspect]
     Active Substance: PREGABALIN
     Dosage: 1200 MG, DAILY
  3. TOPIRAMATE. [Suspect]
     Active Substance: TOPIRAMATE
     Dosage: 800 MG, DAILY
  4. DEPAKENE [Suspect]
     Active Substance: VALPROIC ACID
     Dosage: 500 MG, 2X/DAY
  5. DEPAKENE [Suspect]
     Active Substance: VALPROIC ACID
     Dosage: 1000 MG, DAILY
  6. PREGABALIN. [Suspect]
     Active Substance: PREGABALIN
     Dosage: 1000 MG, DAILY
  7. TOPIRAMATE. [Suspect]
     Active Substance: TOPIRAMATE
     Dosage: 400 MG, 2X/DAY

REACTIONS (4)
  - Somnolence [Recovering/Resolving]
  - Aggression [Unknown]
  - Convulsion [Recovered/Resolved]
  - Asthma [Unknown]
